FAERS Safety Report 16338337 (Version 3)
Quarter: 2020Q2

REPORT INFORMATION
  Report Type: Spontaneous
  Country: US (occurrence: US)
  Receive Date: 20190521
  Receipt Date: 20200413
  Transmission Date: 20200713
  Serious: No
  Sender: FDA-Public Use
  Company Number: US-GILEAD-2019-0408514

PATIENT
  Age: 34 Year
  Sex: Male

DRUGS (44)
  1. DESCOVY [Concomitant]
     Active Substance: EMTRICITABINE\TENOFOVIR ALAFENAMIDE FUMARATE
  2. NAPROXEN. [Concomitant]
     Active Substance: NAPROXEN
  3. XANAX [Concomitant]
     Active Substance: ALPRAZOLAM
  4. OMEPRAZOLE. [Concomitant]
     Active Substance: OMEPRAZOLE
  5. ONDANSETRON [Concomitant]
     Active Substance: ONDANSETRON
  6. HIBICLENS [Concomitant]
     Active Substance: CHLORHEXIDINE GLUCONATE
  7. SEROQUEL [Concomitant]
     Active Substance: QUETIAPINE FUMARATE
  8. BENZOYL PEROXIDE. [Concomitant]
     Active Substance: BENZOYL PEROXIDE
  9. DIPHENHYDRAMINE. [Concomitant]
     Active Substance: DIPHENHYDRAMINE
  10. NORVIR [Concomitant]
     Active Substance: RITONAVIR
  11. PREZCOBIX [Concomitant]
     Active Substance: COBICISTAT\DARUNAVIR ETHANOLATE
  12. BICILLIN L A [Concomitant]
  13. RIBAVIRIN. [Concomitant]
     Active Substance: RIBAVIRIN
  14. ZOLOFT [Concomitant]
     Active Substance: SERTRALINE HYDROCHLORIDE
  15. PRENATAL VITAMINS [Concomitant]
     Active Substance: VITAMINS
  16. TRUVADA [Suspect]
     Active Substance: EMTRICITABINE\TENOFOVIR DISOPROXIL FUMARATE
     Indication: HIV INFECTION
     Dosage: 1 DOSAGE FORM, QD
     Route: 048
     Dates: start: 200708, end: 20130405
  17. BACTRIM DS [Concomitant]
     Active Substance: SULFAMETHOXAZOLE\TRIMETHOPRIM
  18. CLINDAMYCIN HCL [Concomitant]
     Active Substance: CLINDAMYCIN HYDROCHLORIDE
  19. KEFLEX [Concomitant]
     Active Substance: CEPHALEXIN
  20. VICODIN [Concomitant]
     Active Substance: ACETAMINOPHEN\HYDROCODONE BITARTRATE
  21. BIKTARVY [Concomitant]
     Active Substance: BICTEGRAVIR SODIUM\EMTRICITABINE\TENOFOVIR ALAFENAMIDE FUMARATE
  22. AZELASTINE HCL [Concomitant]
     Active Substance: AZELASTINE HYDROCHLORIDE
  23. DOXYCYCLINE HYCLATE. [Concomitant]
     Active Substance: DOXYCYCLINE HYCLATE
  24. FLEXERIL [CEFIXIME] [Concomitant]
     Active Substance: CEFIXIME
  25. EPZICOM [Concomitant]
     Active Substance: ABACAVIR SULFATE\LAMIVUDINE
  26. BACTROBAN [Concomitant]
     Active Substance: MUPIROCIN\MUPIROCIN CALCIUM
  27. REYATAZ [Concomitant]
     Active Substance: ATAZANAVIR SULFATE
  28. VIREAD [Suspect]
     Active Substance: TENOFOVIR DISOPROXIL FUMARATE
     Dosage: 1 DOSAGE FORM, QD
     Route: 048
     Dates: start: 20130405, end: 201607
  29. COMPLERA [Suspect]
     Active Substance: EMTRICITABINE\RILPIVIRINE HYDROCHLORIDE\TENOFOVIR DISOPROXIL FUMARATE
     Indication: HIV INFECTION
     Dosage: UNK
     Route: 048
     Dates: start: 2017, end: 201812
  30. LEXAPRO [Concomitant]
     Active Substance: ESCITALOPRAM OXALATE
  31. FISH OIL [Concomitant]
     Active Substance: FISH OIL
  32. INTELENCE [Concomitant]
     Active Substance: ETRAVIRINE
  33. PEGASYS [Concomitant]
     Active Substance: PEGINTERFERON ALFA-2A
  34. VITAMIN E [Concomitant]
     Active Substance: .ALPHA.-TOCOPHEROL
  35. ERYTHROMYCIN. [Concomitant]
     Active Substance: ERYTHROMYCIN
  36. IBUPROFEN. [Concomitant]
     Active Substance: IBUPROFEN
  37. TETRACYCLINE HCL [Concomitant]
     Active Substance: TETRACYCLINE HYDROCHLORIDE
  38. ACNE [SALICYLIC ACID] [Concomitant]
  39. VITAMIN C [Concomitant]
     Active Substance: ASCORBIC ACID
  40. KETOCONAZOLE. [Concomitant]
     Active Substance: KETOCONAZOLE
  41. VIREAD [Suspect]
     Active Substance: TENOFOVIR DISOPROXIL FUMARATE
     Indication: HIV INFECTION
     Dosage: 1 DOSAGE FORM, QD
     Route: 048
     Dates: start: 2006, end: 2018
  42. PREZISTA [Concomitant]
     Active Substance: DARUNAVIR ETHANOLATE
  43. TIVICAY [Concomitant]
     Active Substance: DOLUTEGRAVIR SODIUM
  44. AZITHROMYCIN ANHYDROUS. [Concomitant]
     Active Substance: AZITHROMYCIN ANHYDROUS

REACTIONS (9)
  - Emotional distress [Unknown]
  - Tooth loss [Not Recovered/Not Resolved]
  - Pain [Unknown]
  - Bone loss [Not Recovered/Not Resolved]
  - Anhedonia [Unknown]
  - Bone density abnormal [Unknown]
  - Bone density decreased [Not Recovered/Not Resolved]
  - Economic problem [Unknown]
  - Anxiety [Unknown]

NARRATIVE: CASE EVENT DATE: 20160218
